FAERS Safety Report 14626187 (Version 2)
Quarter: 2018Q2

REPORT INFORMATION
  Report Type: Spontaneous
  Country: FR (occurrence: FR)
  Receive Date: 20180312
  Receipt Date: 20180402
  Transmission Date: 20180711
  Serious: Yes (Other)
  Sender: FDA-Public Use
  Company Number: FR-TEVA-2018-FR-866261

PATIENT
  Age: 85 Year
  Sex: Male

DRUGS (1)
  1. LEVOCETRIZINE TEVA [Suspect]
     Active Substance: LEVOCETIRIZINE
     Dosage: 1 DOSAGE FORMS DAILY; TAKEN IN THE EVENING

REACTIONS (7)
  - Gastrointestinal mucosal disorder [Recovered/Resolved]
  - Feeding disorder [Recovered/Resolved]
  - Throat clearing [Recovered/Resolved]
  - Coating in mouth [Recovered/Resolved]
  - Weight decreased [Unknown]
  - Oral disorder [Recovered/Resolved]
  - Ageusia [Recovered/Resolved]
